FAERS Safety Report 5521198-8 (Version None)
Quarter: 2007Q4

REPORT INFORMATION
  Report Type: 
  Country: None (occurrence: None)
  Receive Date: 20071119
  Receipt Date: 20071106
  Transmission Date: 20080405
  Serious: Yes (Death)
  Sender: FDA-Public Use
  Company Number: US-SHR-US-2007-039052

PATIENT

DRUGS (1)
  1. BETASERON [Suspect]

REACTIONS (1)
  - DEATH [None]
